FAERS Safety Report 10606304 (Version 2)
Quarter: 2014Q4

REPORT INFORMATION
  Report Type: Report from Study
  Country: LU (occurrence: LU)
  Receive Date: 20141125
  Receipt Date: 20141126
  Transmission Date: 20150529
  Serious: Yes (Death)
  Sender: FDA-Public Use
  Company Number: LU-JNJFOC-20141114239

PATIENT
  Age: 82 Year
  Sex: Male
  Weight: 60 kg

DRUGS (13)
  1. IBRUTINIB [Suspect]
     Active Substance: IBRUTINIB
     Indication: MANTLE CELL LYMPHOMA
     Route: 048
     Dates: start: 20140930
  2. HALDOL [Concomitant]
     Active Substance: HALOPERIDOL
     Route: 048
  3. KALINORM [Concomitant]
     Route: 048
  4. ALL OTHER THERAPEUTIC DRUG [Concomitant]
     Active Substance: UNSPECIFIED INGREDIENT
     Route: 048
  5. ZELITREX [Concomitant]
     Active Substance: VALACYCLOVIR HYDROCHLORIDE
     Route: 048
  6. DEXAMETHASONE. [Concomitant]
     Active Substance: DEXAMETHASONE
     Route: 048
  7. DEMEROL [Concomitant]
     Active Substance: MEPERIDINE HYDROCHLORIDE
     Route: 048
  8. RENITEC COMP. [Concomitant]
  9. MAXALT [Concomitant]
     Active Substance: RIZATRIPTAN BENZOATE
     Route: 048
  10. CLEXANE [Concomitant]
     Active Substance: ENOXAPARIN SODIUM
     Route: 058
  11. BUPRENORPHINE HCL [Concomitant]
     Active Substance: BUPRENORPHINE HYDROCHLORIDE
     Dosage: 17.5 3 PER DAY
  12. CONCOR [Concomitant]
     Active Substance: BISOPROLOL FUMARATE
     Route: 048
  13. AMLOR [Concomitant]
     Active Substance: AMLODIPINE BESYLATE
     Route: 048

REACTIONS (1)
  - Diarrhoea [Fatal]

NARRATIVE: CASE EVENT DATE: 20141002
